FAERS Safety Report 6641544-1 (Version None)
Quarter: 2010Q1

REPORT INFORMATION
  Report Type: 
  Country: None (occurrence: None)
  Receive Date: 20100317
  Receipt Date: 20100317
  Transmission Date: 20100710
  Serious: Yes (Other)
  Sender: FDA-Public Use
  Company Number: None

PATIENT
  Age: 46 Year
  Sex: Female
  Weight: 65.2 kg

DRUGS (10)
  1. HYDROMORPHONE HCL [Suspect]
     Indication: PAIN
     Dosage: PCA 0/0.410 IV
     Route: 042
     Dates: start: 20100108
  2. WARFARIN SODIUM [Concomitant]
  3. APAP TAB [Concomitant]
  4. LIDOCAINE [Concomitant]
  5. ASPART [Concomitant]
  6. GLARGINE [Concomitant]
  7. DIGOXIN [Concomitant]
  8. ROSUVASTATIN [Concomitant]
  9. SPIRONOLACTONE [Concomitant]
  10. FENTANYL [Concomitant]

REACTIONS (1)
  - OXYGEN SATURATION DECREASED [None]
